FAERS Safety Report 20296754 (Version 2)
Quarter: 2022Q1

REPORT INFORMATION
  Report Type: Spontaneous
  Country: NL (occurrence: NL)
  Receive Date: 20220105
  Receipt Date: 20220224
  Transmission Date: 20220423
  Serious: Yes (Other)
  Sender: FDA-Public Use
  Company Number: NL-SAMSUNG-SB-2021-05215

PATIENT
  Age: 73 Year
  Sex: Male

DRUGS (5)
  1. ADALIMUMAB [Suspect]
     Active Substance: ADALIMUMAB
     Indication: Crohn^s disease
     Dosage: WEEK ZERO
     Route: 058
  2. ADALIMUMAB [Suspect]
     Active Substance: ADALIMUMAB
     Dosage: WEEK ONE
     Route: 058
  3. ADALIMUMAB [Suspect]
     Active Substance: ADALIMUMAB
     Dosage: MAINTAINED
     Route: 058
  4. INFLIXIMAB [Suspect]
     Active Substance: INFLIXIMAB
     Indication: Crohn^s disease
     Dosage: UNKNOWN
     Route: 065
  5. MESALAMINE [Concomitant]
     Active Substance: MESALAMINE
     Indication: Crohn^s disease
     Dosage: UNKNOWN
     Route: 065

REACTIONS (10)
  - Lupus-like syndrome [Recovered/Resolved]
  - Thrombocytopenia [Recovered/Resolved]
  - Colitis [Unknown]
  - Drug specific antibody [Unknown]
  - Normocytic anaemia [Unknown]
  - Epistaxis [Recovered/Resolved]
  - Haematoma [Recovered/Resolved]
  - Anti-platelet antibody [Recovered/Resolved]
  - Immune thrombocytopenia [Recovered/Resolved]
  - Inappropriate schedule of product administration [Unknown]
